FAERS Safety Report 24023190 (Version 10)
Quarter: 2024Q3

REPORT INFORMATION
  Report Type: Report from Study
  Country: TR (occurrence: TR)
  Receive Date: 20240627
  Receipt Date: 20240710
  Transmission Date: 20241017
  Serious: No
  Sender: ROCHE
  Company Number: TR-ROCHE-3353081

PATIENT
  Age: 37 Year
  Sex: Male
  Weight: 70.0 kg

DRUGS (16)
  1. ALECTINIB [Suspect]
     Active Substance: ALECTINIB
     Indication: Lung cancer metastatic
     Route: 048
     Dates: start: 20210611
  2. ALECTINIB [Suspect]
     Active Substance: ALECTINIB
     Indication: Non-small cell lung cancer
     Route: 048
     Dates: start: 20210324
  3. GERALGINE-K [Concomitant]
     Indication: Bone pain
     Dosage: 20 TABLET
     Route: 065
     Dates: start: 20210310
  4. DEXAMETHASONE [Concomitant]
     Active Substance: DEXAMETHASONE
     Indication: Oedema
     Route: 048
     Dates: start: 20220223
  5. DELTACORTRIL [Concomitant]
     Active Substance: PREDNISOLONE
     Route: 048
     Dates: start: 20210907, end: 20231029
  6. SULFASALAZINE [Concomitant]
     Active Substance: SULFASALAZINE
     Route: 048
     Dates: start: 20210907, end: 20231029
  7. D-COLEFOR [Concomitant]
     Indication: Vitamin D deficiency
     Route: 048
     Dates: start: 20210907
  8. KEPPRA [Concomitant]
     Active Substance: LEVETIRACETAM
     Route: 048
     Dates: start: 20220825
  9. BENADAY [Concomitant]
     Indication: Fatigue
     Route: 048
     Dates: start: 20220825
  10. LANSOPRAZOLE [Concomitant]
     Active Substance: LANSOPRAZOLE
     Route: 048
     Dates: start: 20220825
  11. LORLATINIB [Concomitant]
     Active Substance: LORLATINIB
     Indication: Metastatic neoplasm
     Dates: start: 20221103, end: 20231028
  12. LORLATINIB [Concomitant]
     Active Substance: LORLATINIB
     Dates: start: 20230109, end: 20231028
  13. BEVACIZUMAB [Concomitant]
     Active Substance: BEVACIZUMAB
     Indication: Radiation necrosis
     Route: 042
     Dates: start: 20221103, end: 20221215
  14. BEVACIZUMAB [Concomitant]
     Active Substance: BEVACIZUMAB
     Dates: start: 20230522, end: 20230605
  15. BEVACIZUMAB [Concomitant]
     Active Substance: BEVACIZUMAB
     Dates: start: 20221031, end: 20221103
  16. BEVACIZUMAB [Concomitant]
     Active Substance: BEVACIZUMAB
     Dates: start: 20230106, end: 20231028

REACTIONS (3)
  - Neutrophil count increased [Recovered/Resolved]
  - Leukocytosis [Recovered/Resolved]
  - Lymphocyte count decreased [Recovered/Resolved]

NARRATIVE: CASE EVENT DATE: 20221103
